FAERS Safety Report 6341692-X (Version None)
Quarter: 2009Q3

REPORT INFORMATION
  Report Type: 
  Country: None (occurrence: None)
  Receive Date: 20090904
  Receipt Date: 20090825
  Transmission Date: 20100115
  Serious: Yes (Other)
  Sender: FDA-Public Use
  Company Number: ES-NOVOPROD-288924

PATIENT
  Sex: Female

DRUGS (2)
  1. NOVOMIX 30 FLEXPEN [Suspect]
     Indication: DIABETES MELLITUS
     Dates: start: 20051201
  2. NOVOMIX 30 FLEXPEN [Suspect]

REACTIONS (3)
  - DIABETIC RETINOPATHY [None]
  - DRUG INEFFECTIVE [None]
  - PRODUCT QUALITY ISSUE [None]
